FAERS Safety Report 11360467 (Version 1)
Quarter: 2015Q3

REPORT INFORMATION
  Report Type: Spontaneous
  Country: IN (occurrence: IN)
  Receive Date: 20150810
  Receipt Date: 20150810
  Transmission Date: 20151125
  Serious: Yes (Other)
  Sender: FDA-Public Use
  Company Number: IN-JNJFOC-20150721456

PATIENT
  Sex: Female
  Weight: 54 kg

DRUGS (7)
  1. CARBOPLATIN. [Suspect]
     Active Substance: CARBOPLATIN
     Indication: BREAST CANCER
     Route: 042
  2. CYCLOPHOSPHAMIDE. [Suspect]
     Active Substance: CYCLOPHOSPHAMIDE
     Indication: BREAST CANCER
     Route: 042
  3. CYCLOPHOSPHAMIDE. [Suspect]
     Active Substance: CYCLOPHOSPHAMIDE
     Indication: OVARIAN CANCER
     Route: 042
  4. DOXORUBICIN HYDROCHLORIDE. [Suspect]
     Active Substance: DOXORUBICIN HYDROCHLORIDE
     Indication: OVARIAN CANCER
     Route: 065
  5. CARBOPLATIN. [Suspect]
     Active Substance: CARBOPLATIN
     Indication: OVARIAN CANCER
     Route: 042
  6. INSULIN [Concomitant]
     Active Substance: INSULIN NOS
     Route: 065
  7. DOXORUBICIN HYDROCHLORIDE. [Suspect]
     Active Substance: DOXORUBICIN HYDROCHLORIDE
     Indication: BREAST CANCER
     Route: 065

REACTIONS (15)
  - Rash [Unknown]
  - Neutropenia [Unknown]
  - Diarrhoea [Unknown]
  - Thrombocytopenia [Unknown]
  - Nausea [Unknown]
  - Electrocardiogram abnormal [Unknown]
  - Decreased appetite [Unknown]
  - Alopecia [Unknown]
  - Bone marrow failure [Unknown]
  - Dry skin [Unknown]
  - Tachyarrhythmia [Unknown]
  - Vomiting [Unknown]
  - Anaemia [Unknown]
  - Stomatitis [Unknown]
  - Palmar-plantar erythrodysaesthesia syndrome [Unknown]
